FAERS Safety Report 6274752-2 (Version None)
Quarter: 2009Q3

REPORT INFORMATION
  Report Type: 
  Country: None (occurrence: None)
  Receive Date: 20090721
  Receipt Date: 20070215
  Transmission Date: 20100115
  Serious: Yes (Hospitalization, Other)
  Sender: FDA-Public Use
  Company Number: US-ASTRAZENECA-2006UW02168

PATIENT
  Age: 3837 Day
  Sex: Male
  Weight: 31.8 kg

DRUGS (37)
  1. SEROQUEL [Suspect]
     Indication: AUTISM
     Route: 048
     Dates: start: 20021009, end: 20021015
  2. SEROQUEL [Suspect]
     Dosage: 25 MG - 50 MG
     Route: 048
  3. VALPROIC ACID [Concomitant]
     Dosage: 250 MG/5 ML SYRUP
  4. FLUOXETINE HCL [Concomitant]
     Dosage: 20 MG
     Route: 048
  5. FLUOXETINE HCL [Concomitant]
     Dosage: 20 MG/5 ML LIQUID
  6. GUANFACINE HYDROCHLORIDE [Concomitant]
     Route: 048
  7. TRAZODONE [Concomitant]
     Route: 048
     Dates: start: 19990616, end: 19990915
  8. TRAZODONE [Concomitant]
     Route: 048
     Dates: end: 19990915
  9. FLUOCINOLONE ACETONIDE [Concomitant]
     Dosage: 60 GM OF OINTMENT 0.025 PERCENT
  10. DEPAKOTE [Concomitant]
     Indication: AFFECTIVE DISORDER
     Route: 048
     Dates: start: 20001006
  11. DEPAKOTE [Concomitant]
     Indication: IMPULSIVE BEHAVIOUR
     Route: 048
     Dates: start: 20001006
  12. DEPAKOTE [Concomitant]
     Route: 048
     Dates: start: 20020101
  13. DEPAKOTE [Concomitant]
     Route: 048
     Dates: start: 20020101
  14. DEPAKOTE [Concomitant]
     Dosage: 500 MG
     Route: 048
     Dates: start: 20061208
  15. DEPAKOTE [Concomitant]
     Dosage: 500 MG
     Route: 048
     Dates: start: 20061208
  16. DEPAKOTE [Concomitant]
     Dosage: 500 AM AND 750 PM
     Route: 048
     Dates: start: 20060101
  17. DEPAKOTE [Concomitant]
     Dosage: 500 AM AND 750 PM
     Route: 048
     Dates: start: 20060101
  18. DEPAKOTE [Concomitant]
     Dosage: 125 MG 2 TABLETS AT LUNCH
     Route: 048
     Dates: start: 20021104
  19. DEPAKOTE [Concomitant]
     Dosage: 125 MG 2 TABLETS AT LUNCH
     Route: 048
     Dates: start: 20021104
  20. HALOPERIDOL [Concomitant]
     Dosage: 2 MG/ML
  21. DIPHEN [Concomitant]
     Dosage: 12.5 MG/5 ML
  22. CLARITIN [Concomitant]
     Indication: RHINITIS ALLERGIC
     Dosage: 10 MG
     Route: 048
  23. AMBIEN [Concomitant]
     Route: 048
     Dates: start: 20001006
  24. AMBIEN [Concomitant]
     Route: 048
     Dates: start: 20020101
  25. ZYPREXA [Concomitant]
     Route: 048
     Dates: start: 20060223, end: 20061208
  26. RITALIN [Concomitant]
     Dates: start: 19991020, end: 19991101
  27. ADDERALL 10 [Concomitant]
     Dosage: 10 MG - 20 MG Q AM
     Route: 048
     Dates: start: 19980101
  28. ADDERALL 10 [Concomitant]
     Route: 048
     Dates: start: 19990120
  29. ADDERALL 10 [Concomitant]
     Dosage: 20 MG AM + NOON, 10 MG Q 4 PM
     Route: 048
     Dates: start: 19990616
  30. LORAZEPAM [Concomitant]
     Route: 048
     Dates: start: 19981207
  31. LORAZEPAM [Concomitant]
     Route: 048
     Dates: start: 19991229, end: 20000112
  32. CLONIDINE [Concomitant]
     Dosage: 0.1 MG - 0.2 MG
     Route: 048
     Dates: start: 20010228
  33. RISPERDAL [Concomitant]
     Indication: AUTISM
     Dosage: 2 TO 4 MG
     Route: 048
     Dates: start: 20011204, end: 20021009
  34. RISPERDAL [Concomitant]
     Indication: ATTENTION DEFICIT/HYPERACTIVITY DISORDER
     Dosage: 2 TO 4 MG
     Route: 048
     Dates: start: 20011204, end: 20021009
  35. RISPERDAL [Concomitant]
     Dosage: 1 MG-3 MG
     Route: 048
     Dates: start: 20000124
  36. RISPERDAL [Concomitant]
     Dosage: 1 MG-3 MG
     Route: 048
     Dates: start: 20000124
  37. BENADRYL [Concomitant]

REACTIONS (24)
  - AGGRESSION [None]
  - AGITATION [None]
  - ANTICONVULSANT DRUG LEVEL BELOW THERAPEUTIC [None]
  - AUTISM [None]
  - BIPOLAR DISORDER [None]
  - BLOOD THYROID STIMULATING HORMONE DECREASED [None]
  - CONDITION AGGRAVATED [None]
  - CONTUSION [None]
  - CONVULSION [None]
  - DECUBITUS ULCER [None]
  - DEPRESSION [None]
  - DRUG HYPERSENSITIVITY [None]
  - EXTRAPYRAMIDAL DISORDER [None]
  - FOAMING AT MOUTH [None]
  - IMPAIRED HEALING [None]
  - INTERMITTENT EXPLOSIVE DISORDER [None]
  - LIMB INJURY [None]
  - MONOCYTE COUNT INCREASED [None]
  - ROAD TRAFFIC ACCIDENT [None]
  - STREPTOCOCCAL IDENTIFICATION TEST POSITIVE [None]
  - STRESS [None]
  - TARDIVE DYSKINESIA [None]
  - UNEVALUABLE EVENT [None]
  - WHITE BLOOD CELL COUNT DECREASED [None]
